FAERS Safety Report 4632641-0 (Version None)
Quarter: 2005Q2

REPORT INFORMATION
  Report Type: 
  Country: None (occurrence: None)
  Receive Date: 20050331
  Receipt Date: 20040913
  Transmission Date: 20051028
  Serious: Yes (Other)
  Sender: FDA-Public Use
  Company Number: 200414427BCC

PATIENT
  Age: 59 Year
  Sex: Female
  Weight: 95.2554 kg

DRUGS (5)
  1. ALEVE [Suspect]
     Indication: TOOTH FRACTURE
     Dosage: 44 MG, ONCE, ORAL; PRN, ORAL
     Route: 048
     Dates: start: 20040911, end: 20040912
  2. ALEVE [Suspect]
     Indication: TOOTHACHE
     Dosage: 44 MG, ONCE, ORAL; PRN, ORAL
     Route: 048
     Dates: start: 20040911, end: 20040912
  3. ALEVE [Suspect]
     Indication: TOOTH FRACTURE
     Dosage: 44 MG, ONCE, ORAL; PRN, ORAL
     Route: 048
     Dates: start: 20040910
  4. ALEVE [Suspect]
     Indication: TOOTHACHE
     Dosage: 44 MG, ONCE, ORAL; PRN, ORAL
     Route: 048
     Dates: start: 20040910
  5. THRYOID [Concomitant]

REACTIONS (1)
  - HAEMATOCHEZIA [None]
